FAERS Safety Report 8349280-0 (Version None)
Quarter: 2012Q2

REPORT INFORMATION
  Report Type: 
  Country: None (occurrence: None)
  Receive Date: 20120510
  Receipt Date: 20120507
  Transmission Date: 20120825
  Serious: Yes (Hospitalization)
  Sender: FDA-Public Use
  Company Number: PHHY2012JP038787

PATIENT

DRUGS (1)
  1. EXELON [Suspect]
     Dosage: 18 MG, UNK
     Route: 062

REACTIONS (1)
  - ULCER [None]
